FAERS Safety Report 4634704-2 (Version None)
Quarter: 2005Q2

REPORT INFORMATION
  Report Type: 
  Country: None (occurrence: None)
  Receive Date: 20050413
  Receipt Date: 20050413
  Transmission Date: 20051028
  Serious: Yes (Hospitalization)
  Sender: FDA-Public Use
  Company Number: None

PATIENT
  Sex: Female
  Weight: 64.4108 kg

DRUGS (2)
  1. IMITREX [Suspect]
     Indication: MIGRAINE
     Dosage: VARYING
     Dates: start: 19900101, end: 20040101
  2. OTHER TRIPTANS (FOR MIGRAINE) [Suspect]
     Indication: MIGRAINE

REACTIONS (3)
  - ARTERIOSPASM CORONARY [None]
  - MIGRAINE [None]
  - SENSORY DISTURBANCE [None]
